FAERS Safety Report 4836829-5 (Version None)
Quarter: 2005Q4

REPORT INFORMATION
  Report Type: 
  Country: None (occurrence: None)
  Receive Date: 20051123
  Receipt Date: 20051010
  Transmission Date: 20060501
  Serious: Yes (Other)
  Sender: FDA-Public Use
  Company Number: US-MERCK-0510USA06242

PATIENT
  Age: 73 Year
  Sex: Female
  Weight: 57 kg

DRUGS (1)
  1. VIOXX [Suspect]
     Indication: ARTHRITIS
     Route: 048

REACTIONS (7)
  - BLOOD PRESSURE INCREASED [None]
  - CAROTID ARTERY OCCLUSION [None]
  - CEREBROVASCULAR ACCIDENT [None]
  - CONDITION AGGRAVATED [None]
  - HYPERTENSION [None]
  - RENAL ARTERY OCCLUSION [None]
  - RENAL DISORDER [None]
